FAERS Safety Report 7241428-4 (Version None)
Quarter: 2011Q1

REPORT INFORMATION
  Report Type: 
  Country: None (occurrence: None)
  Receive Date: 20110124
  Receipt Date: 20110111
  Transmission Date: 20110831
  Serious: Yes (Other)
  Sender: FDA-Public Use
  Company Number: PHHY2011TN03237

PATIENT
  Age: 37 Year
  Sex: Male

DRUGS (3)
  1. CHLORPROMAZINE [Suspect]
     Indication: SCHIZOPHRENIA
     Dosage: UNK
  2. HEPTAMINOL [Suspect]
     Indication: SCHIZOPHRENIA
     Dosage: UNK
  3. HALOPERIDOL [Suspect]
     Indication: SCHIZOPHRENIA
     Dosage: 5 MG, QD

REACTIONS (2)
  - COUGH [None]
  - DRUG INEFFECTIVE [None]
